FAERS Safety Report 4462379-4 (Version None)
Quarter: 2004Q3

REPORT INFORMATION
  Report Type: 
  Country: None (occurrence: None)
  Receive Date: 20040929
  Receipt Date: 20040924
  Transmission Date: 20050211
  Serious: Yes (Death, Other)
  Sender: FDA-Public Use
  Company Number: PHEH2004US10361

PATIENT
  Age: 84 Year
  Sex: Female
  Weight: 68 kg

DRUGS (2)
  1. DIOVAN [Suspect]
     Dosage: 160 MG, QD
     Route: 048
  2. TOPROL-XL [Concomitant]

REACTIONS (4)
  - BLOOD PRESSURE DECREASED [None]
  - DEATH [None]
  - HEAD INJURY [None]
  - SYNCOPE [None]
